FAERS Safety Report 10694884 (Version 1)
Quarter: 2015Q1

REPORT INFORMATION
  Report Type: Spontaneous
  Country: US (occurrence: None)
  Receive Date: 20150106
  Receipt Date: 20150106
  Transmission Date: 20150721
  Serious: Yes (Other)
  Sender: FDA-Public Use
  Company Number: None

PATIENT
  Age: 49 Year
  Sex: Male
  Weight: 87.09 kg

DRUGS (1)
  1. LEXAPRO [Suspect]
     Active Substance: ESCITALOPRAM OXALATE
     Indication: ANXIETY
     Dosage: 1 TABLET ONCE DAILY TAKEN BY MOUTH
     Route: 048
     Dates: start: 20150101, end: 20150105

REACTIONS (2)
  - Night sweats [None]
  - Poor quality sleep [None]

NARRATIVE: CASE EVENT DATE: 20150102
